FAERS Safety Report 18050010 (Version 1)
Quarter: 2020Q3

REPORT INFORMATION
  Report Type: Spontaneous
  Country: CA (occurrence: CA)
  Receive Date: 20200721
  Receipt Date: 20200721
  Transmission Date: 20201103
  Serious: Yes (Other)
  Sender: FDA-Public Use
  Company Number: CA-PFIZER INC-2020275332

PATIENT
  Age: 64 Year
  Sex: Female

DRUGS (14)
  1. OMNARIS [Suspect]
     Active Substance: CICLESONIDE
     Dosage: UNK
     Route: 065
  2. SALBUTAMOL SULFATE [Suspect]
     Active Substance: ALBUTEROL SULFATE
     Dosage: UNK
     Route: 065
  3. SPIRIVA [Suspect]
     Active Substance: TIOTROPIUM BROMIDE MONOHYDRATE
     Indication: ASTHMA
     Dosage: UNK
     Route: 065
  4. TECTA [Suspect]
     Active Substance: PANTOPRAZOLE MAGNESIUM
     Dosage: UNK
     Route: 065
  5. SYMBICORT [Suspect]
     Active Substance: BUDESONIDE\FORMOTEROL FUMARATE DIHYDRATE
     Indication: ASTHMA
     Dosage: UNK UNK, QD
     Route: 065
  6. CLONAZEPAM. [Suspect]
     Active Substance: CLONAZEPAM
     Dosage: UNK
     Route: 065
  7. ENALAPRIL [Suspect]
     Active Substance: ENALAPRIL
     Dosage: UNK
     Route: 065
  8. IMOVANE [Suspect]
     Active Substance: ZOPICLONE
     Dosage: UNK
     Route: 065
  9. SALBUTAMOL SULFATE [Suspect]
     Active Substance: ALBUTEROL SULFATE
     Dosage: UNK UNK, BID
     Route: 065
  10. SYMBICORT [Suspect]
     Active Substance: BUDESONIDE\FORMOTEROL FUMARATE DIHYDRATE
     Dosage: UNK UNK, QID
     Route: 065
  11. SYNTHROID [Suspect]
     Active Substance: LEVOTHYROXINE SODIUM
     Dosage: UNK
     Route: 065
  12. NUCALA [Suspect]
     Active Substance: MEPOLIZUMAB
     Indication: ASTHMA
     Dosage: 100 MILLIGRAM
     Route: 042
  13. PREDNISONE. [Suspect]
     Active Substance: PREDNISONE
     Indication: ASTHMA
     Dosage: UNK
     Route: 065
  14. SYMBICORT [Suspect]
     Active Substance: BUDESONIDE\FORMOTEROL FUMARATE DIHYDRATE
     Dosage: UNK UNK, BID
     Route: 065

REACTIONS (13)
  - Lymph node calcification [Unknown]
  - Productive cough [Unknown]
  - Asthma [Unknown]
  - Vision blurred [Unknown]
  - Back pain [Unknown]
  - Dyspnoea [Unknown]
  - Nasal congestion [Unknown]
  - Chest discomfort [Unknown]
  - Chest pain [Unknown]
  - Obstructive airways disorder [Unknown]
  - Therapeutic product effect incomplete [Unknown]
  - Bronchial wall thickening [Unknown]
  - Broncholithiasis [Unknown]
